FAERS Safety Report 12995105 (Version 7)
Quarter: 2020Q2

REPORT INFORMATION
  Report Type: Spontaneous
  Country: US (occurrence: US)
  Receive Date: 20161202
  Receipt Date: 20200625
  Transmission Date: 20200713
  Serious: No
  Sender: FDA-Public Use
  Company Number: US-PFIZER INC-2016552032

PATIENT
  Age: 78 Year
  Sex: Male
  Weight: 83 kg

DRUGS (5)
  1. XARELTO [Concomitant]
     Active Substance: RIVAROXABAN
     Indication: ANTICOAGULANT THERAPY
     Dosage: 20 MG, 1X/DAY (WITH EVENING MEAL)
     Route: 048
  2. TIKOSYN [Suspect]
     Active Substance: DOFETILIDE
     Indication: ATRIAL FIBRILLATION
     Dosage: 500 MCG, TWICE DAILY (2 CAPSULES OF 250 MCG)
     Route: 048
  3. VIAGRA [Concomitant]
     Active Substance: SILDENAFIL CITRATE
     Indication: ERECTILE DYSFUNCTION
     Dosage: UNK
  4. ELIQUIS [Concomitant]
     Active Substance: APIXABAN
     Indication: ANTICOAGULANT THERAPY
     Dosage: 10 MG, UNK
  5. SYNTHROID [Concomitant]
     Active Substance: LEVOTHYROXINE SODIUM
     Indication: HYPOTHYROIDISM
     Dosage: 125 MCG, DAILY
     Route: 048

REACTIONS (5)
  - Therapeutic product effect incomplete [Recovered/Resolved]
  - Atrial flutter [Recovered/Resolved]
  - Laboratory test abnormal [Recovered/Resolved]
  - Speech disorder [Recovered/Resolved]
  - Palpitations [Recovered/Resolved]

NARRATIVE: CASE EVENT DATE: 201905
